FAERS Safety Report 16401713 (Version 1)
Quarter: 2019Q2

REPORT INFORMATION
  Report Type: Spontaneous
  Country: US (occurrence: US)
  Receive Date: 20190606
  Receipt Date: 20190606
  Transmission Date: 20190711
  Serious: Yes (Other)
  Sender: FDA-Public Use
  Company Number: US-AMGEN-USASP2019089539

PATIENT
  Age: 50 Year
  Sex: Female

DRUGS (2)
  1. ENBREL [Suspect]
     Active Substance: ETANERCEPT
     Indication: PRODUCT USED FOR UNKNOWN INDICATION
     Dosage: UNK
     Route: 065
  2. HUMIRA [Suspect]
     Active Substance: ADALIMUMAB
     Indication: RHEUMATOID ARTHRITIS
     Dosage: UNK
     Route: 058

REACTIONS (12)
  - Metamorphopsia [Recovered/Resolved]
  - Joint dislocation [Unknown]
  - Limb injury [Recovered/Resolved]
  - Depression [Recovered/Resolved]
  - Clavicle fracture [Recovered/Resolved]
  - Mobility decreased [Unknown]
  - Fall [Unknown]
  - Pyrexia [Recovered/Resolved]
  - Swelling face [Recovered/Resolved]
  - Sjogren^s syndrome [Recovered/Resolved]
  - Adverse drug reaction [Recovered/Resolved]
  - Ankle fracture [Recovered/Resolved]

NARRATIVE: CASE EVENT DATE: 2004
